FAERS Safety Report 6422438-3 (Version None)
Quarter: 2009Q4

REPORT INFORMATION
  Report Type: 
  Country: None (occurrence: None)
  Receive Date: 20091030
  Receipt Date: 20091022
  Transmission Date: 20100525
  Serious: Yes (Other)
  Sender: FDA-Public Use
  Company Number: US-ABBOTT-09P-163-0604556-00

PATIENT
  Age: 3 Year
  Sex: Male

DRUGS (3)
  1. VALPROIC ACID SYRUP [Suspect]
     Indication: CONVULSION
  2. VALPROIC ACID SYRUP [Suspect]
  3. VALPROIC ACID SYRUP [Suspect]

REACTIONS (2)
  - CONVULSION [None]
  - ENCEPHALOPATHY [None]
